FAERS Safety Report 21312768 (Version 1)
Quarter: 2022Q3

REPORT INFORMATION
  Report Type: Spontaneous
  Country: US (occurrence: None)
  Receive Date: 20220908
  Receipt Date: 20220908
  Transmission Date: 20221027
  Serious: Yes (Other)
  Sender: FDA-Public Use
  Company Number: None

PATIENT
  Age: 81 Year
  Sex: Female
  Weight: 55.35 kg

DRUGS (11)
  1. CELECOXIB [Suspect]
     Active Substance: CELECOXIB
     Indication: Arthritis
     Dosage: OTHER QUANTITY : 1 CAPSULE(S);?OTHER FREQUENCY : L CAP. EVENING;?
     Route: 048
     Dates: start: 20220818, end: 20220825
  2. AMLODIPINE [Concomitant]
     Active Substance: AMLODIPINE BESYLATE
  3. BISOPROLAL-HCTZ [Concomitant]
  4. ROSUVASTATIN [Concomitant]
     Active Substance: ROSUVASTATIN
  5. KRILL OIL [Concomitant]
  6. CALCIUM [Concomitant]
  7. FIBER [Concomitant]
  8. VITAMINS [Concomitant]
     Active Substance: VITAMINS
  9. JOINT SUPPLEMENT [Concomitant]
  10. MELATONIN [Concomitant]
     Active Substance: MELATONIN
  11. COENZYME Q10 [Concomitant]
     Active Substance: DIETARY SUPPLEMENT\UBIDECARENONE

REACTIONS (4)
  - Rash [None]
  - Skin exfoliation [None]
  - Erythema [None]
  - Hypoaesthesia [None]

NARRATIVE: CASE EVENT DATE: 20220818
